FAERS Safety Report 18266490 (Version 1)
Quarter: 2020Q3

REPORT INFORMATION
  Report Type: Spontaneous
  Country: FR (occurrence: FR)
  Receive Date: 20200915
  Receipt Date: 20200915
  Transmission Date: 20201103
  Serious: Yes (Congenital Anomaly, Other)
  Sender: FDA-Public Use
  Company Number: NVSC2020FR244937

PATIENT

DRUGS (2)
  1. DEPAKINE [Suspect]
     Active Substance: VALPROATE SODIUM
     Indication: PRODUCT USED FOR UNKNOWN INDICATION
     Dosage: MOTHER DOSE: UNKNOWN
     Route: 064
     Dates: start: 200710, end: 200712
  2. LAMOTRIGINE. [Suspect]
     Active Substance: LAMOTRIGINE
     Indication: PRODUCT USED FOR UNKNOWN INDICATION
     Dosage: MOTHER DOSE: 200 MG, QD
     Route: 064
     Dates: start: 20071228

REACTIONS (8)
  - Cardiac murmur [Unknown]
  - Ear disorder [Unknown]
  - Congenital genital malformation [Unknown]
  - Foetal exposure during pregnancy [Unknown]
  - Oropharyngeal discomfort [Unknown]
  - Mental disorder [Unknown]
  - Nasal disorder [Unknown]
  - Behaviour disorder [Unknown]

NARRATIVE: CASE EVENT DATE: 20080704
